FAERS Safety Report 5633314-8 (Version None)
Quarter: 2008Q1

REPORT INFORMATION
  Report Type: 
  Country: None (occurrence: None)
  Receive Date: 20080221
  Receipt Date: 20080215
  Transmission Date: 20080703
  Serious: No
  Sender: FDA-Public Use
  Company Number: US-BAXTER-2008BH001434

PATIENT
  Age: 82 Year
  Sex: Female

DRUGS (4)
  1. STERILE WATER FOR INJECTION IN PLASTIC CONTAINER [Suspect]
     Indication: MEDICAL DIET
     Dosage: DOSE UNIT:UNKNOWN
     Route: 033
  2. TRAVASOL 10% [Suspect]
     Indication: MEDICAL DIET
     Dosage: DOSE UNIT:UNKNOWN
     Route: 033
  3. PROSOL 20% SULFITE FREE [Suspect]
     Indication: MEDICAL DIET
     Dosage: DOSE UNIT:UNKNOWN
     Route: 033
  4. DIANEAL [Concomitant]
     Indication: PERITONEAL DIALYSIS
     Dosage: DOSE UNIT:UNKNOWN
     Route: 033
     Dates: end: 20080101

REACTIONS (1)
  - FUNGAL PERITONITIS [None]
